FAERS Safety Report 20430460 (Version 1)
Quarter: 2022Q1

REPORT INFORMATION
  Report Type: Spontaneous
  Country: US (occurrence: US)
  Receive Date: 20220204
  Receipt Date: 20220204
  Transmission Date: 20220424
  Serious: No
  Sender: FDA-Public Use
  Company Number: US-OYSTER POINT PHARMA, INC.-2021OYS00003

PATIENT
  Age: 74 Year
  Sex: Female

DRUGS (1)
  1. TYRVAYA [Suspect]
     Active Substance: VARENICLINE TARTRATE
     Indication: Dry eye
     Dosage: 1 DOSAGE UNITS (SPRAY)
     Route: 045
     Dates: start: 20211102

REACTIONS (7)
  - Burning sensation [Unknown]
  - Abdominal pain upper [Unknown]
  - Off label use [Unknown]
  - Product after taste [Not Recovered/Not Resolved]
  - Product administration error [Unknown]
  - Wrong technique in product usage process [Unknown]
  - Sneezing [Unknown]

NARRATIVE: CASE EVENT DATE: 20211102
